FAERS Safety Report 21342792 (Version 1)
Quarter: 2022Q3

REPORT INFORMATION
  Report Type: Spontaneous
  Country: DE (occurrence: DE)
  Receive Date: 20220916
  Receipt Date: 20220916
  Transmission Date: 20221026
  Serious: Yes (Hospitalization)
  Sender: FDA-Public Use
  Company Number: DE-NOVARTISPH-NVSC2022DE205601

PATIENT
  Age: 57 Year
  Sex: Male
  Weight: 110 kg

DRUGS (7)
  1. CARBAMAZEPINE [Suspect]
     Active Substance: CARBAMAZEPINE
     Indication: Product used for unknown indication
     Dosage: 200 MG, BID (0.25-0-0.25-0)
     Route: 048
  2. BENSERAZIDE\LEVODOPA [Suspect]
     Active Substance: BENSERAZIDE\LEVODOPA
     Indication: Product used for unknown indication
     Dosage: 25|100 MG, QD (0-0-0-1)
     Route: 048
  3. LAMOTRIGINE [Concomitant]
     Active Substance: LAMOTRIGINE
     Indication: Product used for unknown indication
     Dosage: 100 MG, BID (1-0-1-0)
     Route: 048
  4. PREGABALIN [Concomitant]
     Active Substance: PREGABALIN
     Indication: Product used for unknown indication
     Dosage: 25 MG, QD (0-0-1-0)
     Route: 048
  5. PREGABALIN [Concomitant]
     Active Substance: PREGABALIN
     Dosage: 50 MG, BID (1-0-1-0)
     Route: 048
  6. TAMSULOSIN [Concomitant]
     Active Substance: TAMSULOSIN
     Indication: Product used for unknown indication
     Dosage: 0.4 MG, QD (0-0-1-0)
     Route: 048
  7. METAMIZOL [Concomitant]
     Active Substance: METAMIZOLE SODIUM
     Indication: Product used for unknown indication
     Dosage: 500 MILLIGRAM PER MILLILITRE (BEDARF, TROPFEN )
     Route: 048

REACTIONS (7)
  - Erythema [Unknown]
  - Impaired healing [Unknown]
  - Wound secretion [Unknown]
  - Localised infection [Unknown]
  - Drain site complication [Unknown]
  - Inflammation [Unknown]
  - Product prescribing error [Unknown]
